FAERS Safety Report 9963707 (Version 1)
Quarter: 2014Q1

REPORT INFORMATION
  Report Type: Report from Study
  Country: US (occurrence: US)
  Receive Date: 20140305
  Receipt Date: 20140305
  Transmission Date: 20141002
  Serious: No
  Sender: FDA-Public Use
  Company Number: US-ABBVIE-13P-163-1116948-00

PATIENT
  Age: 71 Year
  Sex: Female

DRUGS (11)
  1. HUMIRA [Suspect]
     Indication: CROHN^S DISEASE
     Dates: start: 20130510, end: 20130510
  2. HUMIRA [Suspect]
     Dates: start: 20130524, end: 20130524
  3. HUMIRA [Suspect]
  4. SINGULAIR [Concomitant]
     Indication: HYPERSENSITIVITY
  5. SINGULAIR [Concomitant]
     Indication: ASTHMA
  6. ENTOCORT [Concomitant]
     Indication: CROHN^S DISEASE
  7. FINACEA [Concomitant]
     Indication: ROSACEA
  8. CALCIUM PLUS VITAMIN D [Concomitant]
     Indication: PRODUCT USED FOR UNKNOWN INDICATION
  9. MULTIVITAMIN [Concomitant]
     Indication: PRODUCT USED FOR UNKNOWN INDICATION
     Dosage: DAILY
  10. GUAIFENESIN [Concomitant]
     Indication: HYPERSENSITIVITY
     Dosage: DAILY
  11. GUAIFENESIN [Concomitant]
     Indication: ASTHMA

REACTIONS (3)
  - Gingival bleeding [Not Recovered/Not Resolved]
  - Injection site pain [Not Recovered/Not Resolved]
  - Contusion [Not Recovered/Not Resolved]
